FAERS Safety Report 8443903-3 (Version None)
Quarter: 2012Q2

REPORT INFORMATION
  Report Type: 
  Country: None (occurrence: None)
  Receive Date: 20120618
  Receipt Date: 20120605
  Transmission Date: 20120825
  Serious: Yes (Hospitalization)
  Sender: FDA-Public Use
  Company Number: US-BAYER-2012-056017

PATIENT
  Age: 36 Year
  Sex: Female
  Weight: 90.703 kg

DRUGS (4)
  1. YAZ [Suspect]
     Indication: CONTRACEPTION
     Dosage: UNK
     Dates: start: 20070409, end: 20090930
  2. YASMIN [Suspect]
     Indication: CONTRACEPTION
     Dosage: UNK
     Dates: start: 20041223, end: 20070409
  3. MELOXICAM [Concomitant]
     Dosage: 7.5 MG, UNK
  4. PRILOSEC [Concomitant]
     Dosage: UNK

REACTIONS (6)
  - DEEP VEIN THROMBOSIS [None]
  - INJURY [None]
  - ARTHRALGIA [None]
  - OEDEMA PERIPHERAL [None]
  - PAIN [None]
  - THROMBOPHLEBITIS SUPERFICIAL [None]
